FAERS Safety Report 9283478 (Version 1)
Quarter: 2013Q2

REPORT INFORMATION
  Report Type: Spontaneous
  Country: GB (occurrence: GB)
  Receive Date: 20130510
  Receipt Date: 20130510
  Transmission Date: 20140414
  Serious: Yes (Death, Other)
  Sender: FDA-Public Use
  Company Number: PHHY2013GB045005

PATIENT
  Age: 93 Year
  Sex: Female

DRUGS (3)
  1. DIGOXIN [Suspect]
  2. MORPHINE [Suspect]
  3. DILTIAZEM [Suspect]

REACTIONS (7)
  - Death [Fatal]
  - Oesophageal rupture [Unknown]
  - Pneumomediastinum [Unknown]
  - Oxygen saturation decreased [Unknown]
  - Hypoxia [Unknown]
  - Subcutaneous emphysema [Not Recovered/Not Resolved]
  - Restlessness [Unknown]
